FAERS Safety Report 9126671 (Version 1)
Quarter: 2013Q1

REPORT INFORMATION
  Report Type: Spontaneous
  Country: CA (occurrence: CA)
  Receive Date: 20130228
  Receipt Date: 20130228
  Transmission Date: 20140127
  Serious: Yes (Other)
  Sender: FDA-Public Use
  Company Number: CA-BAYER-2013-024900

PATIENT
  Sex: Female

DRUGS (5)
  1. BETASERON [Suspect]
     Indication: RELAPSING-REMITTING MULTIPLE SCLEROSIS
     Dosage: UNK
     Dates: start: 201209, end: 201301
  2. VITAMIN D [Concomitant]
  3. SYNTHROID [Concomitant]
  4. RITALIN [Concomitant]
  5. IMOVANE [Concomitant]

REACTIONS (3)
  - Respiratory tract infection [None]
  - Hypothyroidism [None]
  - Drug intolerance [None]
